FAERS Safety Report 11278441 (Version 1)
Quarter: 2015Q3

REPORT INFORMATION
  Report Type: Spontaneous
  Country: US (occurrence: None)
  Receive Date: 20150715
  Receipt Date: 20150715
  Transmission Date: 20151125
  Serious: No
  Sender: FDA-Public Use
  Company Number: DL2015-0598

PATIENT
  Age: 22 Year
  Sex: Female

DRUGS (2)
  1. MIFEPRISTONE TABLETS, 200 MG (DANCO LABS) [Suspect]
     Active Substance: MIFEPRISTONE
     Indication: ABORTION INDUCED
     Route: 048
     Dates: start: 20150317
  2. MISOPROLSTOL TABLETS, 200 MCG [Suspect]
     Active Substance: MISOPROSTOL
     Route: 002
     Dates: start: 20150318, end: 20150324

REACTIONS (4)
  - Abortion incomplete [None]
  - Haemorrhage [None]
  - Endometritis [None]
  - Anaemia [None]

NARRATIVE: CASE EVENT DATE: 20150324
